FAERS Safety Report 8583326-X (Version None)
Quarter: 2012Q3

REPORT INFORMATION
  Report Type: 
  Country: None (occurrence: None)
  Receive Date: 20120809
  Receipt Date: 20120802
  Transmission Date: 20120928
  Serious: Yes (Hospitalization)
  Sender: FDA-Public Use
  Company Number: DK-B.I. PHARMACEUTICALS,INC./RIDGEFIELD-2012-SW-00603DB

PATIENT
  Sex: Male

DRUGS (2)
  1. PRADAXA [Suspect]
     Indication: ATRIAL FIBRILLATION
     Dosage: 220 MG
     Route: 048
     Dates: start: 20120713, end: 20120724
  2. CENTYL MED KALIUMKLORID [Concomitant]
     Indication: DIURETIC THERAPY
     Dates: start: 20000101

REACTIONS (5)
  - RECTAL HAEMORRHAGE [None]
  - HAEMATOCHEZIA [None]
  - HYPOTENSION [None]
  - FREQUENT BOWEL MOVEMENTS [None]
  - ANAEMIA [None]
